FAERS Safety Report 23852615 (Version 1)
Quarter: 2024Q2

REPORT INFORMATION
  Report Type: Spontaneous
  Country: US (occurrence: US)
  Receive Date: 20240514
  Receipt Date: 20240514
  Transmission Date: 20240715
  Serious: Yes (Hospitalization, Other)
  Sender: FDA-Public Use
  Company Number: US-GLANDPHARMA-US-2024GLNLIT00117

PATIENT
  Age: 3 Decade
  Sex: Male

DRUGS (15)
  1. ROPIVACAINE HYDROCHLORIDE [Suspect]
     Active Substance: ROPIVACAINE HYDROCHLORIDE
     Indication: Abdominal pain
     Dosage: BASAL RATE OF 6 ML/HOUR WITH A BOLUS OF 4ML AVAILABLE EVERY HOUR
     Route: 008
  2. DULOXETINE [Concomitant]
     Active Substance: DULOXETINE
     Indication: Abdominal pain
     Route: 065
  3. HYDROMORPHONE [Concomitant]
     Active Substance: HYDROMORPHONE
     Indication: Abdominal pain
     Route: 065
  4. HYDROMORPHONE [Concomitant]
     Active Substance: HYDROMORPHONE
     Dosage: 0-0.2 MG/HOUR
     Route: 065
  5. ACETAMINOPHEN [Concomitant]
     Active Substance: ACETAMINOPHEN
     Indication: Abdominal pain
     Route: 065
  6. SENNA LEAF [Concomitant]
     Active Substance: SENNA LEAF
     Indication: Small intestinal obstruction
     Route: 065
  7. POLYETHYLENE GLYCOL 3350 [Concomitant]
     Active Substance: POLYETHYLENE GLYCOL 3350
     Indication: Small intestinal obstruction
     Route: 065
  8. LACTULOSE [Concomitant]
     Active Substance: LACTULOSE
     Indication: Small intestinal obstruction
     Route: 065
  9. METOCLOPRAMIDE [Concomitant]
     Active Substance: METOCLOPRAMIDE
     Indication: Small intestinal obstruction
     Route: 065
  10. DRONABINOL [Concomitant]
     Active Substance: DRONABINOL
     Indication: Small intestinal obstruction
     Route: 065
  11. FENTANYL [Concomitant]
     Active Substance: FENTANYL\FENTANYL CITRATE
     Indication: Abdominal pain
     Dosage: INITIALLY 25 UG/HOUR, TITRATED UP TO 125 UG/HOUR
     Route: 065
  12. BUPRENORPHINE [Concomitant]
     Active Substance: BUPRENORPHINE
     Route: 060
  13. METHYLNALTREXONE [Concomitant]
     Active Substance: METHYLNALTREXONE
     Route: 065
  14. DECADRON [Concomitant]
     Active Substance: DEXAMETHASONE
     Indication: Product used for unknown indication
     Route: 065
  15. OCTREOTIDE [Concomitant]
     Active Substance: OCTREOTIDE\OCTREOTIDE ACETATE
     Indication: Product used for unknown indication
     Route: 065

REACTIONS (2)
  - Sepsis [Unknown]
  - Product use in unapproved indication [Unknown]
